FAERS Safety Report 10212479 (Version 1)
Quarter: 2014Q2

REPORT INFORMATION
  Report Type: Spontaneous
  Country: US (occurrence: US)
  Receive Date: 20140602
  Receipt Date: 20140602
  Transmission Date: 20141212
  Serious: No
  Sender: FDA-Public Use
  Company Number: US-AMGEN-USASP2014036944

PATIENT
  Age: 63 Year
  Sex: Female

DRUGS (1)
  1. ENBREL [Suspect]
     Indication: RHEUMATOID ARTHRITIS
     Dosage: 25 MG, 2 TIMES/WK AKES BOTH ON SAME DAY
     Route: 065
     Dates: start: 20040317

REACTIONS (2)
  - Overdose [Not Recovered/Not Resolved]
  - Injection site pain [Not Recovered/Not Resolved]
